FAERS Safety Report 17655045 (Version 2)
Quarter: 2020Q2

REPORT INFORMATION
  Report Type: Spontaneous
  Country: BR (occurrence: BR)
  Receive Date: 20200410
  Receipt Date: 20200501
  Transmission Date: 20200713
  Serious: Yes (Death, Hospitalization)
  Sender: FDA-Public Use
  Company Number: BR-ASTRAZENECA-2020SE48901

PATIENT
  Age: 83 Year
  Sex: Male

DRUGS (4)
  1. LOSARTAN. [Concomitant]
     Active Substance: LOSARTAN
  2. QUETIAPINE. [Suspect]
     Active Substance: QUETIAPINE
     Indication: INSOMNIA
     Route: 048
     Dates: start: 20200322, end: 2020
  3. ACETYLSALICYLIC ACID [Concomitant]
     Active Substance: ASPIRIN
  4. DOXAZOSIN [Concomitant]
     Active Substance: DOXAZOSIN MESYLATE

REACTIONS (12)
  - Abdominal pain [Recovered/Resolved]
  - Blood pressure increased [Not Recovered/Not Resolved]
  - Blood sodium decreased [Recovered/Resolved]
  - Vomiting [Recovered/Resolved]
  - Rhinitis [Not Recovered/Not Resolved]
  - Diarrhoea [Recovered/Resolved]
  - Eye pain [Recovered/Resolved]
  - Cough [Not Recovered/Not Resolved]
  - Off label use [Recovered/Resolved]
  - Coronavirus infection [Fatal]
  - Motor dysfunction [Recovered/Resolved]
  - Blood glucose increased [Not Recovered/Not Resolved]

NARRATIVE: CASE EVENT DATE: 2020
